FAERS Safety Report 24842584 (Version 3)
Quarter: 2025Q1

REPORT INFORMATION
  Report Type: Spontaneous
  Country: US (occurrence: US)
  Receive Date: 20250115
  Receipt Date: 20250327
  Transmission Date: 20250408
  Serious: No
  Sender: SANOFI AVENTIS
  Company Number: US-SA-2025SA011695

PATIENT
  Age: 5 Year
  Sex: Male

DRUGS (1)
  1. DUPIXENT [Suspect]
     Active Substance: DUPILUMAB
     Indication: Dermatitis atopic
     Dosage: 300 MG, Q4W
     Route: 058
     Dates: start: 202410

REACTIONS (5)
  - Dermatitis allergic [Unknown]
  - Condition aggravated [Unknown]
  - Therapeutic response unexpected [Unknown]
  - Product use in unapproved indication [Unknown]
  - Rash [Unknown]

NARRATIVE: CASE EVENT DATE: 20241001
